FAERS Safety Report 10335685 (Version 1)
Quarter: 2014Q3

REPORT INFORMATION
  Report Type: Spontaneous
  Country: US (occurrence: US)
  Receive Date: 20140723
  Receipt Date: 20140723
  Transmission Date: 20150326
  Serious: No
  Sender: FDA-Public Use
  Company Number: US-BRISTOL-MYERS SQUIBB COMPANY-19000058

PATIENT
  Age: 66 Year
  Sex: Male
  Weight: 98.86 kg

DRUGS (1)
  1. COUMADIN [Suspect]
     Active Substance: WARFARIN SODIUM
     Dosage: 3MG:AT TIMES HALF A DOSE:RESTARTED ON AN UNK DATE
     Dates: start: 2009

REACTIONS (2)
  - Abdominal pain upper [Unknown]
  - Drug resistance [Unknown]
